FAERS Safety Report 9883486 (Version 1)
Quarter: 2014Q1

REPORT INFORMATION
  Report Type: Spontaneous
  Country: US (occurrence: US)
  Receive Date: 20140210
  Receipt Date: 20140210
  Transmission Date: 20141002
  Serious: No
  Sender: FDA-Public Use
  Company Number: US-BIOGENIDEC-2014BI011967

PATIENT
  Age: 61 Year
  Sex: Female

DRUGS (10)
  1. AVONEX [Suspect]
     Indication: MULTIPLE SCLEROSIS
     Route: 030
     Dates: start: 20080425
  2. BACTRIM [Concomitant]
  3. DETROL LA [Concomitant]
  4. ENALAPRIL MALEATE [Concomitant]
  5. FOLIC ACID [Concomitant]
  6. LOTRISONE [Concomitant]
  7. SIMVASTATIN [Concomitant]
  8. VICODIN HP [Concomitant]
  9. VITAMIN B12 [Concomitant]
  10. VITAMIN D [Concomitant]

REACTIONS (2)
  - Vaginal inflammation [Unknown]
  - Cystitis noninfective [Unknown]
